FAERS Safety Report 16970778 (Version 3)
Quarter: 2022Q2

REPORT INFORMATION
  Report Type: Report from Study
  Country: CA (occurrence: CA)
  Receive Date: 20191029
  Receipt Date: 20220621
  Transmission Date: 20220721
  Serious: Yes (Disabling, Other)
  Sender: FDA-Public Use
  Company Number: CA-PFIZER INC-2019460424

PATIENT
  Age: 50 Year
  Sex: Female

DRUGS (31)
  1. AMLODIPINE BESYLATE [Interacting]
     Active Substance: AMLODIPINE BESYLATE
     Dosage: 10 MG, UNK
     Route: 065
  2. METHOTREXATE SODIUM [Interacting]
     Active Substance: METHOTREXATE SODIUM
     Dosage: UNK
     Route: 065
  3. ATENOLOL [Interacting]
     Active Substance: ATENOLOL
     Dosage: 50 MG, UNK
     Route: 048
  4. CYCLOSPORINE [Interacting]
     Active Substance: CYCLOSPORINE
     Dosage: UNK
     Route: 065
  5. COSENTYX [Interacting]
     Active Substance: SECUKINUMAB
     Indication: Psoriasis
     Dosage: 300 MG, MONTHLY
     Route: 058
     Dates: start: 20151230, end: 20160127
  6. COSENTYX [Interacting]
     Active Substance: SECUKINUMAB
     Dosage: 300 MG, MONTHLY
     Route: 058
     Dates: start: 2017, end: 20180709
  7. COSENTYX [Interacting]
     Active Substance: SECUKINUMAB
     Dosage: 300 MG, MONTHLY
     Route: 058
     Dates: start: 20160331
  8. COSENTYX [Interacting]
     Active Substance: SECUKINUMAB
     Dosage: 300 MG, MONTHLY
     Route: 058
     Dates: start: 20160527
  9. COSENTYX [Interacting]
     Active Substance: SECUKINUMAB
     Dosage: 300 MG, MONTHLY
     Route: 058
     Dates: start: 20160930
  10. COSENTYX [Interacting]
     Active Substance: SECUKINUMAB
     Dosage: 300 MG, MONTHLY
     Route: 058
     Dates: start: 20161102
  11. COSENTYX [Interacting]
     Active Substance: SECUKINUMAB
     Dosage: 300 MG, MONTHLY
     Route: 058
     Dates: start: 20170621
  12. COSENTYX [Interacting]
     Active Substance: SECUKINUMAB
     Dosage: 300 MG, MONTHLY
     Route: 058
     Dates: start: 20171011
  13. COSENTYX [Interacting]
     Active Substance: SECUKINUMAB
     Dosage: 300 MG, MONTHLY
     Route: 058
     Dates: start: 20171111
  14. COSENTYX [Interacting]
     Active Substance: SECUKINUMAB
     Dosage: 300 MG, MONTHLY
     Route: 058
     Dates: start: 20171211
  15. COSENTYX [Interacting]
     Active Substance: SECUKINUMAB
     Dosage: 300 MG, MONTHLY
     Route: 058
  16. COSENTYX [Interacting]
     Active Substance: SECUKINUMAB
     Dosage: 300 MG, MONTHLY
     Route: 058
  17. COSENTYX [Interacting]
     Active Substance: SECUKINUMAB
     Dosage: 300 MG, MONTHLY
     Route: 058
  18. COSENTYX [Interacting]
     Active Substance: SECUKINUMAB
     Dosage: 300 MG, MONTHLY
     Route: 058
  19. IRBESARTAN [Interacting]
     Active Substance: IRBESARTAN
     Dosage: 300 MG, UNK
     Route: 065
  20. TRIAMTERENE [Interacting]
     Active Substance: TRIAMTERENE
     Dosage: 50 MG, UNK
     Route: 065
  21. ASPIRIN [Concomitant]
     Active Substance: ASPIRIN
     Dosage: UNK
  22. BETAMETHASONE DIPROPIONATE\CALCIPOTRIENE [Concomitant]
     Active Substance: BETAMETHASONE DIPROPIONATE\CALCIPOTRIENE
     Dosage: UNK
  23. CALCIUM [Concomitant]
     Active Substance: CALCIUM
     Dosage: UNK
  24. COAL TAR [Concomitant]
     Active Substance: COAL TAR
     Dosage: UNK
     Route: 061
  25. ERGOCALCIFEROL [Concomitant]
     Active Substance: ERGOCALCIFEROL
     Dosage: UNK
  26. HUMIRA [Concomitant]
     Active Substance: ADALIMUMAB
     Dosage: UNK
  27. METFORMIN HYDROCHLORIDE/TOLBUTAMIDE [Concomitant]
     Dosage: UNK
  28. OMEGA-3 FATTY ACIDS [Concomitant]
     Active Substance: OMEGA-3 FATTY ACIDS
     Dosage: UNK
  29. PSORALEN [Concomitant]
     Active Substance: PSORALEN
     Dosage: UNK
  30. RABEPRAZOLE SODIUM [Concomitant]
     Active Substance: RABEPRAZOLE SODIUM
     Indication: Abdominal discomfort
     Dosage: UNK
  31. STELARA [Concomitant]
     Active Substance: USTEKINUMAB
     Dosage: UNK
     Dates: start: 201512, end: 201512

REACTIONS (27)
  - Abdominal discomfort [Unknown]
  - Arthralgia [Unknown]
  - Back pain [Unknown]
  - Blood pressure diastolic decreased [Unknown]
  - Depressed mood [Unknown]
  - Drug ineffective [Not Recovered/Not Resolved]
  - Drug interaction [Not Recovered/Not Resolved]
  - Fatigue [Unknown]
  - Malaise [Not Recovered/Not Resolved]
  - Pain [Unknown]
  - Pain in extremity [Unknown]
  - Pruritus [Unknown]
  - Diabetic neuropathy [Unknown]
  - Contusion [Recovered/Resolved]
  - Blood pressure increased [Unknown]
  - Dry skin [Unknown]
  - Fall [Unknown]
  - Feeling abnormal [Unknown]
  - Fungal infection [Unknown]
  - General physical health deterioration [Unknown]
  - Hypersomnia [Unknown]
  - Injection site pain [Unknown]
  - Joint range of motion decreased [Unknown]
  - Nasopharyngitis [Unknown]
  - Psoriasis [Not Recovered/Not Resolved]
  - Skin burning sensation [Unknown]
  - Inappropriate schedule of product administration [Unknown]

NARRATIVE: CASE EVENT DATE: 20151230
